FAERS Safety Report 6372677-5 (Version None)
Quarter: 2009Q3

REPORT INFORMATION
  Report Type: 
  Country: None (occurrence: None)
  Receive Date: 20090924
  Receipt Date: 20090410
  Transmission Date: 20100115
  Serious: No
  Sender: FDA-Public Use
  Company Number: US-ASTRAZENECA-2008UW27554

PATIENT
  Age: 50 Year
  Sex: Male
  Weight: 109.8 kg

DRUGS (4)
  1. SEROQUEL [Suspect]
     Route: 048
     Dates: start: 20040101, end: 20050101
  2. GEODON [Concomitant]
  3. RISPERDAL [Concomitant]
  4. ZYPREXA [Concomitant]

REACTIONS (2)
  - BIOPSY LIVER [None]
  - TYPE 2 DIABETES MELLITUS [None]
